FAERS Safety Report 13779579 (Version 2)
Quarter: 2017Q4

REPORT INFORMATION
  Report Type: Spontaneous
  Country: US (occurrence: US)
  Receive Date: 20170721
  Receipt Date: 20171130
  Transmission Date: 20180320
  Serious: Yes (Other)
  Sender: FDA-Public Use
  Company Number: US-ACTELION-A-US2017-156573

PATIENT
  Age: 6 Month
  Sex: Female

DRUGS (9)
  1. TRACLEER [Suspect]
     Active Substance: BOSENTAN
     Indication: PULMONARY HYPERTENSION
     Dosage: 31.25 MG, BID
     Route: 048
     Dates: start: 20160928
  2. PRILOSEC [Concomitant]
     Active Substance: OMEPRAZOLE MAGNESIUM
  3. TRACLEER [Suspect]
     Active Substance: BOSENTAN
     Dosage: 3 MG, BID
     Route: 048
     Dates: start: 20170319, end: 20170326
  4. REGLAN [Concomitant]
     Active Substance: METOCLOPRAMIDE HYDROCHLORIDE
  5. TRACLEER [Suspect]
     Active Substance: BOSENTAN
     Dosage: 10.2 MG, BID
     Route: 048
     Dates: start: 20170314
  6. TRACLEER [Suspect]
     Active Substance: BOSENTAN
     Dosage: 5 MG, BID
     Route: 048
     Dates: start: 20170710
  7. TRACLEER [Suspect]
     Active Substance: BOSENTAN
     Dosage: 6 MG, BID
     Route: 048
     Dates: start: 20170327, end: 20171030
  8. SILDENAFIL. [Concomitant]
     Active Substance: SILDENAFIL
  9. MULTIVITAMIN [Concomitant]
     Active Substance: VITAMINS

REACTIONS (3)
  - Aspartate aminotransferase increased [Not Recovered/Not Resolved]
  - Liver function test increased [Not Recovered/Not Resolved]
  - Alanine aminotransferase increased [Not Recovered/Not Resolved]

NARRATIVE: CASE EVENT DATE: 20170406
